FAERS Safety Report 12284043 (Version 1)
Quarter: 2016Q2

REPORT INFORMATION
  Report Type: Spontaneous
  Country: US (occurrence: US)
  Receive Date: 20160419
  Receipt Date: 20160419
  Transmission Date: 20160815
  Serious: Yes (Hospitalization)
  Sender: FDA-Public Use
  Company Number: US-VERTEX PHARMACEUTICALS-2016-002478

PATIENT
  Age: 27 Year
  Sex: Female

DRUGS (19)
  1. VITAMIN E [Concomitant]
     Active Substance: .ALPHA.-TOCOPHEROL
  2. CALCIUM [Concomitant]
     Active Substance: CALCIUM
  3. LORATADINE. [Concomitant]
     Active Substance: LORATADINE
  4. FISH OIL [Concomitant]
     Active Substance: FISH OIL
  5. VITAMIN A [Concomitant]
     Active Substance: VITAMIN A
  6. ALPRAZOLAM. [Concomitant]
     Active Substance: ALPRAZOLAM
  7. MULTIVITAMIN [Concomitant]
     Active Substance: VITAMINS
  8. NOVOLOG [Concomitant]
     Active Substance: INSULIN ASPART
  9. LISINOPRIL. [Concomitant]
     Active Substance: LISINOPRIL
  10. RIFAMPIN. [Concomitant]
     Active Substance: RIFAMPIN
  11. CIPROFLOXACIN. [Concomitant]
     Active Substance: CIPROFLOXACIN
  12. ORKAMBI [Suspect]
     Active Substance: IVACAFTOR\LUMACAFTOR
     Indication: CYSTIC FIBROSIS
     Dosage: 250 MG, BID
     Route: 048
     Dates: start: 20150819
  13. CEFPODOXIME [Concomitant]
     Active Substance: CEFPODOXIME
  14. VITAMIN B COMPLEX [Concomitant]
     Active Substance: CYANOCOBALAMIN\DEXPANTHENOL\NIACINAMIDE\PYRIDOXINE HYDROCHLORIDE\RIBOFLAVIN 5^-PHOSPHATE SODIUM\THIAMINE HYDROCHLORIDE\VITAMIN B COMPLEX
  15. CLOBETASOL [Concomitant]
     Active Substance: CLOBETASOL
  16. VITAMIN D [Concomitant]
     Active Substance: CHOLECALCIFEROL
  17. OXYCODONE [Concomitant]
     Active Substance: OXYCODONE
  18. PREDNISONE. [Concomitant]
     Active Substance: PREDNISONE
  19. ASPIRIN. [Concomitant]
     Active Substance: ASPIRIN

REACTIONS (1)
  - Pulmonary embolism [Unknown]

NARRATIVE: CASE EVENT DATE: 201603
